FAERS Safety Report 8842388 (Version 2)
Quarter: 2012Q4

REPORT INFORMATION
  Report Type: 
  Country: NL (occurrence: NL)
  Receive Date: 20121016
  Receipt Date: 20121022
  Transmission Date: 20130627
  Serious: Yes (Other)
  Sender: FDA-Public Use
  Company Number: PHHY2012NL091031

PATIENT
  Sex: Female

DRUGS (3)
  1. METHYLPHENIDATE [Suspect]
     Indication: DISTURBANCE IN ATTENTION
     Dosage: 1 to 2, DF, daily
     Route: 048
     Dates: start: 201008, end: 201101
  2. METHYLPHENIDATE [Suspect]
     Route: 048
     Dates: start: 2012
  3. INDERM [Concomitant]
     Route: 003

REACTIONS (4)
  - Depression [Not Recovered/Not Resolved]
  - Feeling abnormal [Not Recovered/Not Resolved]
  - Depressed mood [Not Recovered/Not Resolved]
  - Drug ineffective [Unknown]
